FAERS Safety Report 17766419 (Version 1)
Quarter: 2020Q2

REPORT INFORMATION
  Report Type: Spontaneous
  Country: US (occurrence: US)
  Receive Date: 20200511
  Receipt Date: 20200511
  Transmission Date: 20200714
  Serious: Yes (Hospitalization)
  Sender: FDA-Public Use
  Company Number: None

PATIENT
  Age: 75 Year
  Sex: Female

DRUGS (8)
  1. NITROGLYCERN [Concomitant]
  2. HYDROXYZ PAM [Concomitant]
     Active Substance: HYDROXYZINE PAMOATE
  3. MEMANTINE. [Concomitant]
     Active Substance: MEMANTINE
  4. CARVEDILOL. [Concomitant]
     Active Substance: CARVEDILOL
  5. AMLODIPINE [Concomitant]
     Active Substance: AMLODIPINE BESYLATE
  6. GLATIRAMER [Suspect]
     Active Substance: GLATIRAMER
     Indication: MULTIPLE SCLEROSIS
     Dosage: ?          OTHER FREQUENCY:3 TIMES PER WEEK;?
     Route: 058
     Dates: start: 20190620
  7. TRAMADOL. [Concomitant]
     Active Substance: TRAMADOL
  8. RANOLAZINE. [Concomitant]
     Active Substance: RANOLAZINE

REACTIONS (2)
  - Fall [None]
  - Pelvic fracture [None]

NARRATIVE: CASE EVENT DATE: 20200227
